FAERS Safety Report 4278916-9 (Version None)
Quarter: 2004Q1

REPORT INFORMATION
  Report Type: 
  Country: None (occurrence: None)
  Receive Date: 20040126
  Receipt Date: 20040114
  Transmission Date: 20041129
  Serious: Yes (Hospitalization)
  Sender: FDA-Public Use
  Company Number: PHRM2004FR00574

PATIENT
  Age: 55 Year
  Sex: Male

DRUGS (1)
  1. TRILEPTAL [Suspect]
     Indication: NEURALGIA
     Dosage: 1 DF, QD
     Route: 048
     Dates: start: 20030930, end: 20031004

REACTIONS (2)
  - LYMPHOCYTOSIS [None]
  - NEUTROPENIA [None]
